FAERS Safety Report 7989710-7 (Version None)
Quarter: 2011Q4

REPORT INFORMATION
  Report Type: 
  Country: None (occurrence: None)
  Receive Date: 20111219
  Receipt Date: 20111206
  Transmission Date: 20120403
  Serious: Yes (Hospitalization, Other)
  Sender: FDA-Public Use
  Company Number: US-ELI_LILLY_AND_COMPANY-US201007004860

PATIENT
  Sex: Female

DRUGS (45)
  1. PREDNISONE TAB [Concomitant]
     Dosage: 20 MG, WEEKLY (1/W)
     Route: 065
  2. PREDNISONE TAB [Concomitant]
     Dosage: 10 MG, WEEKLY (1/W)
     Route: 065
  3. OMEPRAZOLE [Concomitant]
  4. POTASSIUM CHLORIDE [Concomitant]
  5. OXYCODONE HCL [Concomitant]
  6. SUCRALFATE [Concomitant]
  7. VERAPAMIL [Concomitant]
  8. FORTEO [Suspect]
     Dosage: 20 UG, DAILY (1/D)
  9. THEO-DUR [Concomitant]
  10. XANAX [Concomitant]
  11. AMBIEN [Concomitant]
  12. MONTELUKAST SODIUM [Concomitant]
  13. MAGNESIUM [Concomitant]
  14. FORTEO [Suspect]
     Indication: OSTEOPOROSIS
     Dosage: 20 UG, DAILY (1/D)
     Route: 065
     Dates: start: 20100622
  15. ALBUTEROL [Concomitant]
  16. XOPENEX [Concomitant]
  17. AMLODIPINE BESYLATE [Concomitant]
     Indication: BLOOD PRESSURE
  18. SINGULAIR [Concomitant]
  19. TRAZODONE HCL [Concomitant]
  20. SPIRIVA [Concomitant]
  21. MULTIPLE VITAMINS [Concomitant]
  22. LACTULOSE [Concomitant]
  23. DULCOLAX [Concomitant]
  24. OXYGEN [Concomitant]
     Dosage: UNK L, UNK
  25. FORTEO [Suspect]
     Dosage: 20 UG, QD
     Route: 065
  26. FUROSEMIDE [Concomitant]
  27. GABAPENTIN [Concomitant]
  28. AMLODIPINE [Concomitant]
  29. PROAIR HFA [Concomitant]
  30. FORTEO [Suspect]
     Dosage: 20 UG, QD
     Dates: end: 20110601
  31. FORTEO [Suspect]
     Dosage: 20 UG, QD
  32. FORTEO [Suspect]
     Dosage: 20 UG, QD
     Route: 065
  33. CALCIUM CITRATE W/VITAMIN D NOS [Concomitant]
  34. ADVAIR DISKUS 100/50 [Concomitant]
  35. CALCIUM [Concomitant]
  36. ZOLPIDEM [Concomitant]
  37. PREDNISONE TAB [Concomitant]
     Dosage: 20 MG, WEEKLY (1/W)
     Route: 065
  38. NYSTATIN [Concomitant]
  39. THEOPHYLLINE [Concomitant]
  40. VITAMIN D [Concomitant]
  41. MAGNESIUM OXIDE [Concomitant]
  42. LIPITOR [Concomitant]
  43. ZOLOFT [Concomitant]
  44. OXYCONTIN [Concomitant]
  45. POTASSIUM CHLORIDE [Concomitant]

REACTIONS (29)
  - EMPHYSEMA [None]
  - CHRONIC OBSTRUCTIVE PULMONARY DISEASE [None]
  - BLOOD CALCIUM INCREASED [None]
  - OEDEMA MOUTH [None]
  - NODULE [None]
  - OEDEMA PERIPHERAL [None]
  - BLOOD POTASSIUM DECREASED [None]
  - NAUSEA [None]
  - MUSCLE SPASMS [None]
  - DYSPNOEA [None]
  - HYPERTENSION [None]
  - MEMORY IMPAIRMENT [None]
  - POOR QUALITY DRUG ADMINISTERED [None]
  - BLOOD MAGNESIUM DECREASED [None]
  - COMPRESSION FRACTURE [None]
  - CONTUSION [None]
  - VOMITING [None]
  - MALAISE [None]
  - URINARY TRACT INFECTION [None]
  - CATARACT [None]
  - ARTHRALGIA [None]
  - ASTHENIA [None]
  - PANCREATITIS [None]
  - ABDOMINAL PAIN UPPER [None]
  - VISUAL ACUITY REDUCED [None]
  - PARAESTHESIA [None]
  - BACK PAIN [None]
  - TOOTH INJURY [None]
  - ORAL PAIN [None]
